FAERS Safety Report 6991410-7 (Version None)
Quarter: 2010Q3

REPORT INFORMATION
  Report Type: 
  Country: None (occurrence: None)
  Receive Date: 20100916
  Receipt Date: 20090827
  Transmission Date: 20110219
  Serious: No
  Sender: FDA-Public Use
  Company Number: US-WYE-H10749409

PATIENT
  Sex: Male
  Weight: 90.8 kg

DRUGS (5)
  1. PRISTIQ [Suspect]
     Indication: DEPRESSION
     Route: 048
     Dates: start: 20090825
  2. ACETYLSALICYLIC ACID [Concomitant]
  3. XANAX [Concomitant]
  4. VYTORIN [Concomitant]
  5. LOPRESSOR [Concomitant]

REACTIONS (1)
  - DYSGEUSIA [None]
